FAERS Safety Report 18080694 (Version 1)
Quarter: 2020Q3

REPORT INFORMATION
  Report Type: Spontaneous
  Country: US (occurrence: US)
  Receive Date: 20200728
  Receipt Date: 20200728
  Transmission Date: 20201103
  Serious: No
  Sender: FDA-Public Use
  Company Number: US-GLENMARK PHARMACEUTICALS-2020GMK046321

PATIENT

DRUGS (1)
  1. MUPIROCIN OINTMENT USP, 2% [Suspect]
     Active Substance: MUPIROCIN
     Indication: PRODUCT USE IN UNAPPROVED INDICATION
     Dosage: UNK, BID [(TWICE DAILY (MORNING AND BEDTIME)]
     Route: 045
     Dates: start: 20200217

REACTIONS (9)
  - Scab [Unknown]
  - Incorrect route of product administration [Unknown]
  - Rhinalgia [Unknown]
  - Epistaxis [Unknown]
  - Product use issue [Unknown]
  - Rhinorrhoea [Unknown]
  - Nasal disorder [Unknown]
  - Nasal discomfort [Unknown]
  - Nasal dryness [Unknown]
